FAERS Safety Report 17344043 (Version 2)
Quarter: 2020Q2

REPORT INFORMATION
  Report Type: Spontaneous
  Country: US (occurrence: US)
  Receive Date: 20200129
  Receipt Date: 20200623
  Transmission Date: 20200713
  Serious: No
  Sender: FDA-Public Use
  Company Number: US-ALLERGAN-1937133US

PATIENT
  Sex: Female

DRUGS (6)
  1. KYBELLA [Suspect]
     Active Substance: DEOXYCHOLIC ACID
     Indication: PRODUCT USED FOR UNKNOWN INDICATION
     Dosage: 2.4 ML, SINGLE
     Route: 058
     Dates: start: 20180417, end: 20180417
  2. CEPHALON [Concomitant]
  3. ACACIA. [Concomitant]
     Active Substance: ACACIA
  4. LIDOCAINE. [Concomitant]
     Active Substance: LIDOCAINE
  5. BOTOX COSMETIC [Suspect]
     Active Substance: ONABOTULINUMTOXINA
     Indication: SKIN WRINKLING
     Dosage: UNK, SINGLE
  6. BOTOX COSMETIC [Suspect]
     Active Substance: ONABOTULINUMTOXINA
     Indication: SKIN WRINKLING
     Dosage: UNK, SINGLE

REACTIONS (2)
  - Off label use [Unknown]
  - Facial asymmetry [Not Recovered/Not Resolved]

NARRATIVE: CASE EVENT DATE: 20180624
